FAERS Safety Report 18758637 (Version 1)
Quarter: 2021Q1

REPORT INFORMATION
  Report Type: Spontaneous
  Country: IT (occurrence: IT)
  Receive Date: 20210119
  Receipt Date: 20210119
  Transmission Date: 20210419
  Serious: Yes (Hospitalization, Other)
  Sender: FDA-Public Use
  Company Number: IT-JNJFOC-A-CH2020-208554

PATIENT
  Age: 3 Year
  Sex: Male

DRUGS (1)
  1. ZAVESCA [Suspect]
     Active Substance: MIGLUSTAT
     Indication: GALACTOSIALIDOSIS
     Dosage: 100 MG, BID
     Route: 048

REACTIONS (20)
  - Asthenia [Unknown]
  - Dehydration [Recovering/Resolving]
  - Vomiting [Recovering/Resolving]
  - Psychomotor disadaptation syndrome [Not Recovered/Not Resolved]
  - Feeding disorder [Not Recovered/Not Resolved]
  - Gastrostomy [Unknown]
  - Eye movement disorder [Recovering/Resolving]
  - Loss of personal independence in daily activities [Not Recovered/Not Resolved]
  - Intentional product use issue [Unknown]
  - Weight decreased [Recovering/Resolving]
  - Seizure [Recovering/Resolving]
  - Speech disorder developmental [Unknown]
  - Illness [Recovering/Resolving]
  - Staring [Recovering/Resolving]
  - Crying [Unknown]
  - Pain [Unknown]
  - Extrapyramidal disorder [Unknown]
  - Intellectual disability [Unknown]
  - Upper motor neurone lesion [Unknown]
  - Gastrooesophageal reflux disease [Unknown]
